FAERS Safety Report 7413935-2 (Version None)
Quarter: 2011Q2

REPORT INFORMATION
  Report Type: 
  Country: None (occurrence: None)
  Receive Date: 20110414
  Receipt Date: 20110408
  Transmission Date: 20111010
  Serious: Yes (Hospitalization)
  Sender: FDA-Public Use
  Company Number: US-BIOGENIDEC-2011BI013350

PATIENT
  Age: 74 Year
  Sex: Female

DRUGS (5)
  1. ASPIRIN [Concomitant]
  2. AVONEX [Suspect]
     Indication: MULTIPLE SCLEROSIS
     Route: 030
     Dates: start: 20040101
  3. SEROQUEL [Concomitant]
  4. UNKNOWN MEDICATION [Concomitant]
     Indication: HYPERTENSION
  5. LEXAPRO [Concomitant]

REACTIONS (2)
  - TRIGEMINAL NEURALGIA [None]
  - NERVOUS SYSTEM DISORDER [None]
